FAERS Safety Report 24698193 (Version 1)
Quarter: 2024Q4

REPORT INFORMATION
  Report Type: Spontaneous
  Country: IT (occurrence: IT)
  Receive Date: 20241204
  Receipt Date: 20241204
  Transmission Date: 20250114
  Serious: Yes (Other)
  Sender: EISAI
  Company Number: None

PATIENT
  Age: 52 Year
  Sex: Female
  Weight: 72 kg

DRUGS (8)
  1. LENVIMA [Suspect]
     Active Substance: LENVATINIB
     Indication: Ovarian epithelial cancer
     Route: 048
     Dates: start: 20241031
  2. KEYTRUDA [Suspect]
     Active Substance: PEMBROLIZUMAB
     Indication: Ovarian epithelial cancer
     Dosage: DOSE UNKNOWN
     Route: 042
     Dates: start: 20241031, end: 202411
  3. XANAX [Concomitant]
     Active Substance: ALPRAZOLAM
     Indication: Anxiety
     Dosage: DRUG TAKEN FOR MORE THAN A YEAR, CHRONICALLY
     Route: 048
  4. ANAFRANIL [Concomitant]
     Active Substance: CLOMIPRAMINE HYDROCHLORIDE
     Indication: Depression
     Dosage: DRUG TAKEN FOR MORE THAN A YEAR, CHRONICALLY
     Route: 048
  5. BISOPROLOL FUMARATE [Concomitant]
     Active Substance: BISOPROLOL FUMARATE
     Indication: Hypertension
     Dosage: DRUG TAKEN FOR MORE THAN A YEAR, CHRONIC
     Route: 048
  6. EN [Concomitant]
     Active Substance: DELORAZEPAM
     Indication: Anxiety
     Dosage: DRUG TAKEN FOR MORE THAN A YEAR, CHRONIC
     Route: 048
  7. LASIX [Concomitant]
     Active Substance: FUROSEMIDE
     Indication: Hypertension
     Dosage: DRUG TAKEN FOR MORE THAN A YEAR, CHRONIC
     Route: 048
  8. ASENAPINE MALEATE [Concomitant]
     Active Substance: ASENAPINE MALEATE
     Indication: Bipolar disorder
     Dosage: DRUG TAKEN FOR MORE THAN A YEAR, CHRONIC
     Route: 048

REACTIONS (1)
  - Hepatitis [Not Recovered/Not Resolved]

NARRATIVE: CASE EVENT DATE: 20241121
